FAERS Safety Report 17206851 (Version 1)
Quarter: 2019Q4

REPORT INFORMATION
  Report Type: Spontaneous
  Country: ES (occurrence: ES)
  Receive Date: 20191227
  Receipt Date: 20191227
  Transmission Date: 20200122
  Serious: Yes (Other)
  Sender: FDA-Public Use
  Company Number: ES-TEVA-2019-ES-1157430

PATIENT
  Age: 70 Year
  Sex: Female

DRUGS (1)
  1. BISOPROLOL (2328A) [Suspect]
     Active Substance: BISOPROLOL
     Indication: ANGINA UNSTABLE
     Dosage: 5 MILLIGRAM DAILY; BISOPROLOL 5 MG 30 TABLETS 0.5 AT BREAKFAST-0.5 AT THE DINNER
     Route: 048
     Dates: start: 20171101, end: 20191108

REACTIONS (1)
  - Vulvovaginitis [Recovered/Resolved]

NARRATIVE: CASE EVENT DATE: 20190801
